FAERS Safety Report 8566515-X (Version None)
Quarter: 2012Q3

REPORT INFORMATION
  Report Type: 
  Country: None (occurrence: None)
  Receive Date: 20120803
  Receipt Date: 20111019
  Transmission Date: 20120928
  Serious: No
  Sender: FDA-Public Use
  Company Number: US-ABBOTT-11P-163-0867495-00

PATIENT
  Sex: Female
  Weight: 64.468 kg

DRUGS (4)
  1. NIASPAN [Suspect]
     Indication: BLOOD CHOLESTEROL INCREASED
     Dates: start: 20101109, end: 20110101
  2. NIASPAN [Suspect]
     Dates: start: 20111001
  3. ASPIRIN [Concomitant]
     Indication: DRUG THERAPY
     Dates: start: 20101101
  4. NIASPAN [Suspect]
     Dates: start: 20110101, end: 20111001

REACTIONS (1)
  - FLUSHING [None]
